FAERS Safety Report 15467177 (Version 2)
Quarter: 2018Q4

REPORT INFORMATION
  Report Type: Spontaneous
  Country: FR (occurrence: FR)
  Receive Date: 20181005
  Receipt Date: 20181207
  Transmission Date: 20190204
  Serious: Yes (Hospitalization)
  Sender: FDA-Public Use
  Company Number: FR-B.I. PHARMACEUTICALS,INC./RIDGEFIELD-2018-12-003277

PATIENT
  Age: 71 Year
  Sex: Female
  Weight: 75 kg

DRUGS (10)
  1. FLUOXETINE [Concomitant]
     Active Substance: FLUOXETINE HYDROCHLORIDE
     Indication: PRODUCT USED FOR UNKNOWN INDICATION
     Dosage: 10 MG/DAY
     Route: 065
  2. BISOCE [Interacting]
     Active Substance: BISOPROLOL
     Route: 065
  3. PRADAXA [Suspect]
     Active Substance: DABIGATRAN ETEXILATE MESYLATE
     Indication: ATRIAL FIBRILLATION
     Route: 048
     Dates: end: 20180824
  4. LASILIX [Interacting]
     Active Substance: FUROSEMIDE
     Indication: ACUTE CORONARY SYNDROME
     Route: 048
     Dates: start: 20180629, end: 20180828
  5. BISOCE [Interacting]
     Active Substance: BISOPROLOL
     Indication: ACUTE CORONARY SYNDROME
     Route: 048
     Dates: start: 20180629
  6. ZOPICLONE [Concomitant]
     Active Substance: ZOPICLONE
     Indication: PRODUCT USED FOR UNKNOWN INDICATION
     Dosage: 7.5 MG/DAY
     Route: 065
  7. ANETHOLTRITHION [Concomitant]
     Active Substance: ANETHOLTRITHION
     Indication: PRODUCT USED FOR UNKNOWN INDICATION
     Route: 065
  8. VALPROMIDE [Concomitant]
     Active Substance: VALPROMIDE
     Indication: PRODUCT USED FOR UNKNOWN INDICATION
     Dosage: 2 CP X3/DAY
     Route: 065
  9. HALDOL [Interacting]
     Active Substance: HALOPERIDOL
     Indication: MENTAL DISORDER
     Dosage: 2.5MG ON MORNING +5MG ON EVENING
     Route: 048
  10. BIPERIDENE LP [Concomitant]
     Indication: PRODUCT USED FOR UNKNOWN INDICATION
     Dosage: 4 CP X2/DAY
     Route: 065

REACTIONS (2)
  - Myocardial infarction [Recovering/Resolving]
  - Intracardiac thrombus [Recovering/Resolving]

NARRATIVE: CASE EVENT DATE: 20180824
